FAERS Safety Report 11912700 (Version 1)
Quarter: 2016Q1

REPORT INFORMATION
  Report Type: Spontaneous
  Country: US (occurrence: US)
  Receive Date: 20160113
  Receipt Date: 20160113
  Transmission Date: 20160526
  Serious: Yes (Hospitalization)
  Sender: FDA-Public Use
  Company Number: US-APOTEX-2016AP005132

PATIENT
  Age: 34 Year
  Sex: Male

DRUGS (1)
  1. SELEGILINE HYDROCHLORIDE. [Suspect]
     Active Substance: SELEGILINE HYDROCHLORIDE
     Indication: MAJOR DEPRESSION
     Dosage: 10 MG, DAILY
     Route: 065

REACTIONS (11)
  - Tachycardia [Recovering/Resolving]
  - Tachyphrenia [Recovering/Resolving]
  - Depression [Recovering/Resolving]
  - Drug withdrawal syndrome [Recovering/Resolving]
  - Distractibility [Recovering/Resolving]
  - Hypertension [Recovering/Resolving]
  - Prescription drug used without a prescription [Recovering/Resolving]
  - Affect lability [Recovering/Resolving]
  - Insomnia [Recovering/Resolving]
  - Anxiety [Recovering/Resolving]
  - Panic attack [Recovering/Resolving]
